FAERS Safety Report 10537149 (Version 2)
Quarter: 2014Q4

REPORT INFORMATION
  Report Type: Spontaneous
  Country: CA (occurrence: CA)
  Receive Date: 20141022
  Receipt Date: 20141110
  Transmission Date: 20150529
  Serious: Yes (Death, Hospitalization)
  Sender: FDA-Public Use
  Company Number: CA-ACTELION-A-NJ2014-106673

PATIENT
  Age: 41 Year
  Sex: Female

DRUGS (8)
  1. CARIPUL [Suspect]
     Active Substance: EPOPROSTENOL
     Indication: PULMONARY ARTERIAL HYPERTENSION
     Dosage: UNK
     Route: 042
     Dates: start: 20140811
  2. SPIRONOLACTONE. [Concomitant]
     Active Substance: SPIRONOLACTONE
  3. TYLENOL [Concomitant]
     Active Substance: ACETAMINOPHEN
  4. REVATIO [Suspect]
     Active Substance: SILDENAFIL CITRATE
     Indication: PULMONARY ARTERIAL HYPERTENSION
     Dosage: 20 MG, TID
     Route: 048
     Dates: start: 20140526
  5. ZAROXOLYN [Concomitant]
     Active Substance: METOLAZONE
  6. FUROSEMIDE. [Concomitant]
     Active Substance: FUROSEMIDE
  7. MIDODRINE [Concomitant]
     Active Substance: MIDODRINE
  8. POTASSIUM [Concomitant]
     Active Substance: POTASSIUM

REACTIONS (3)
  - Lung transplant [Unknown]
  - Lung disorder [Not Recovered/Not Resolved]
  - Death [Fatal]

NARRATIVE: CASE EVENT DATE: 20140917
